FAERS Safety Report 5411272-9 (Version None)
Quarter: 2007Q3

REPORT INFORMATION
  Report Type: 
  Country: None (occurrence: None)
  Receive Date: 20070810
  Receipt Date: 20070801
  Transmission Date: 20080115
  Serious: Yes (Hospitalization)
  Sender: FDA-Public Use
  Company Number: IT-ROCHE-506528

PATIENT
  Age: 63 Year
  Sex: Female

DRUGS (4)
  1. DACLIZUMAB [Suspect]
     Route: 065
     Dates: start: 20070417
  2. TACROLIMUS [Suspect]
     Route: 048
     Dates: start: 20070417, end: 20070716
  3. TACROLIMUS [Suspect]
     Route: 048
     Dates: start: 20070717, end: 20070718
  4. TACROLIMUS [Suspect]
     Route: 048
     Dates: start: 20070719

REACTIONS (1)
  - CROSSMATCH INCOMPATIBLE [None]
